FAERS Safety Report 10993572 (Version 2)
Quarter: 2015Q2

REPORT INFORMATION
  Report Type: Report from Study
  Country: US (occurrence: US)
  Receive Date: 20150407
  Receipt Date: 20150408
  Transmission Date: 20150821
  Serious: Yes (Death)
  Sender: FDA-Public Use
  Company Number: US-ROCHE-1370288

PATIENT
  Sex: Male
  Weight: 77.9 kg

DRUGS (9)
  1. XOLAIR [Suspect]
     Active Substance: OMALIZUMAB
     Indication: ASTHMA
     Dosage: MOST RECENT DOSE RECEIVED ON: 16/JUL/2014
     Route: 058
  2. DULERA [Concomitant]
     Active Substance: FORMOTEROL FUMARATE DIHYDRATE\MOMETASONE FUROATE
     Dosage: 150-5 MCG /ACT, 2 PUFFS
     Route: 065
     Dates: start: 20111227
  3. QVAR [Concomitant]
     Active Substance: BECLOMETHASONE DIPROPIONATE
     Route: 055
     Dates: start: 20140529
  4. PREDNISONE. [Concomitant]
     Active Substance: PREDNISONE
     Dosage: 2 TAB EACH AM X 4 DAYS, THEN 1 TAB DAILY FOR 4 DAYS
     Route: 065
     Dates: end: 20140529
  5. AMOXICILLIN. [Concomitant]
     Active Substance: AMOXICILLIN
     Route: 065
     Dates: start: 20111220
  6. LIPITOR [Concomitant]
     Active Substance: ATORVASTATIN CALCIUM
     Route: 048
  7. SYMBICORT [Concomitant]
     Active Substance: BUDESONIDE\FORMOTEROL FUMARATE DIHYDRATE
  8. FLUCONAZOLE. [Concomitant]
     Active Substance: FLUCONAZOLE
     Route: 048
     Dates: start: 20110127
  9. NEXIUM [Concomitant]
     Active Substance: ESOMEPRAZOLE MAGNESIUM
     Route: 048

REACTIONS (11)
  - Cough [Not Recovered/Not Resolved]
  - Chest discomfort [Recovered/Resolved]
  - Productive cough [Recovered/Resolved]
  - Eye pruritus [Not Recovered/Not Resolved]
  - Death [Fatal]
  - Dyspnoea exertional [Recovered/Resolved]
  - Chronic obstructive pulmonary disease [Not Recovered/Not Resolved]
  - Asthma [Unknown]
  - Ocular hyperaemia [Unknown]
  - Lacrimation increased [Unknown]
  - Dyspnoea [Recovered/Resolved]
